FAERS Safety Report 23573580 (Version 1)
Quarter: 2024Q1

REPORT INFORMATION
  Report Type: Spontaneous
  Country: US (occurrence: US)
  Receive Date: 20240228
  Receipt Date: 20240228
  Transmission Date: 20240409
  Serious: No
  Sender: FDA-Public Use
  Company Number: US-TLX-2024000138

PATIENT
  Age: 63 Year
  Sex: Male
  Weight: 104.32 kg

DRUGS (1)
  1. ILLUCCIX [Suspect]
     Active Substance: GALLIUM GA-68 GOZETOTIDE
     Indication: Imaging procedure
     Dosage: DUE TO WORD LIMITATION DOSAGE INFO ADDED TO ADDITIONAL INFORMATION ON PRODUCT.
     Route: 040
     Dates: start: 20240118, end: 20240118

REACTIONS (1)
  - Injection site pain [Recovered/Resolved]

NARRATIVE: CASE EVENT DATE: 20240118
